FAERS Safety Report 26158568 (Version 1)
Quarter: 2025Q4

REPORT INFORMATION
  Report Type: Spontaneous
  Country: US (occurrence: None)
  Receive Date: 20251215
  Receipt Date: 20251215
  Transmission Date: 20260117
  Serious: Yes (Other)
  Sender: FDA-CTU
  Company Number: None

PATIENT
  Age: 59 Year
  Sex: Male
  Weight: 135 kg

DRUGS (2)
  1. SPRAVATO [Suspect]
     Active Substance: ESKETAMINE
     Dosage: FREQUENCY : DAILY;
     Route: 045
     Dates: start: 20251210, end: 20251210
  2. SPRAVATO [Concomitant]
     Active Substance: ESKETAMINE
     Dates: start: 20250909

REACTIONS (4)
  - Poisoning [None]
  - Feeling drunk [None]
  - Abnormal behaviour [None]
  - Emotional disorder [None]

NARRATIVE: CASE EVENT DATE: 20251210
